FAERS Safety Report 5485528-8 (Version None)
Quarter: 2007Q4

REPORT INFORMATION
  Report Type: 
  Country: None (occurrence: None)
  Receive Date: 20071015
  Receipt Date: 20071005
  Transmission Date: 20080405
  Serious: Yes (Life-Threatening, Hospitalization, Other)
  Sender: FDA-Public Use
  Company Number: GB-PFIZER INC-2007047518

PATIENT
  Sex: Male
  Weight: 78.5 kg

DRUGS (11)
  1. ATORVASTATIN CALCIUM [Suspect]
     Indication: CORONARY ARTERY DISEASE
     Dosage: DAILY DOSE:80MG
     Route: 048
     Dates: start: 20050418, end: 20050515
  2. ATORVASTATIN CALCIUM [Suspect]
     Dosage: DAILY DOSE:80MG
     Route: 048
     Dates: start: 20050516, end: 20050725
  3. ATORVASTATIN CALCIUM [Concomitant]
     Route: 048
  4. ATENOLOL [Concomitant]
     Route: 048
  5. PERINDOPRIL ERBUMINE [Concomitant]
     Route: 048
  6. ASPIRIN [Concomitant]
     Route: 048
  7. NICORANDIL [Concomitant]
     Route: 048
  8. OMEPRAZOLE [Concomitant]
     Route: 048
  9. ALL OTHER THERAPEUTIC PRODUCTS [Concomitant]
     Route: 048
  10. CO-CODAMOL [Concomitant]
     Route: 048
  11. GLYCERYL TRINITRATE [Concomitant]
     Route: 060

REACTIONS (1)
  - TRANSIENT ISCHAEMIC ATTACK [None]
